FAERS Safety Report 15632055 (Version 2)
Quarter: 2018Q4

REPORT INFORMATION
  Report Type: Spontaneous
  Country: US (occurrence: US)
  Receive Date: 20181119
  Receipt Date: 20181222
  Transmission Date: 20190205
  Serious: No
  Sender: FDA-Public Use
  Company Number: US-009507513-1811USA002428

PATIENT
  Sex: Female

DRUGS (1)
  1. SINGULAIR [Suspect]
     Active Substance: MONTELUKAST SODIUM
     Dosage: UNK
     Dates: start: 201810

REACTIONS (3)
  - Product design confusion [Unknown]
  - Packaging design issue [Unknown]
  - No adverse event [Unknown]

NARRATIVE: CASE EVENT DATE: 2018
